FAERS Safety Report 23433806 (Version 1)
Quarter: 2024Q1

REPORT INFORMATION
  Report Type: Spontaneous
  Country: US (occurrence: None)
  Receive Date: 20240123
  Receipt Date: 20240123
  Transmission Date: 20240409
  Serious: Yes (Death)
  Sender: FDA-Public Use
  Company Number: None

PATIENT
  Sex: Female

DRUGS (5)
  1. LORBRENA [Suspect]
     Active Substance: LORLATINIB
     Indication: Lung neoplasm malignant
     Dosage: FREQUENCY : DAILY;?
     Route: 048
     Dates: start: 202308
  2. LORBRENA [Suspect]
     Active Substance: LORLATINIB
     Indication: Metastases to central nervous system
  3. LORBRENA [Suspect]
     Active Substance: LORLATINIB
     Indication: Malignant neoplasm of pleura metastatic
  4. TABRECTA [Concomitant]
     Active Substance: CAPMATINIB
  5. RETEVMO [Concomitant]
     Active Substance: SELPERCATINIB

REACTIONS (1)
  - Death [None]
